FAERS Safety Report 16204834 (Version 1)
Quarter: 2019Q2

REPORT INFORMATION
  Report Type: Spontaneous
  Country: PL (occurrence: PL)
  Receive Date: 20190416
  Receipt Date: 20190416
  Transmission Date: 20190711
  Serious: Yes (Hospitalization)
  Sender: FDA-Public Use
  Company Number: PL-PFIZER INC-2019159037

PATIENT
  Age: 57 Year
  Sex: Female

DRUGS (3)
  1. OXALIPLATIN. [Suspect]
     Active Substance: OXALIPLATIN
     Indication: NEOPLASM MALIGNANT
     Dosage: 260 MG, UNK
     Route: 042
     Dates: start: 20161212, end: 20161212
  2. CAPECITABINE. [Suspect]
     Active Substance: CAPECITABINE
     Indication: SMALL INTESTINE CARCINOMA
     Dosage: 1000 MG, UNK
     Route: 042
     Dates: start: 20161212
  3. EPIRUBICIN HCL [Suspect]
     Active Substance: EPIRUBICIN HYDROCHLORIDE
     Indication: SMALL INTESTINE CARCINOMA
     Dosage: 100 MG, UNK
     Route: 042
     Dates: start: 20161212, end: 20161212

REACTIONS (1)
  - Laryngospasm [Recovered/Resolved]
